FAERS Safety Report 20349152 (Version 2)
Quarter: 2022Q1

REPORT INFORMATION
  Report Type: Report from Study
  Country: US (occurrence: US)
  Receive Date: 20220119
  Receipt Date: 20220316
  Transmission Date: 20220423
  Serious: Yes (Other)
  Sender: FDA-Public Use
  Company Number: US-BIOGEN-2022BI01085060

PATIENT
  Sex: Male

DRUGS (8)
  1. TYSABRI [Suspect]
     Active Substance: NATALIZUMAB
     Indication: Multiple sclerosis
     Dosage: INFUSED OVER 1 HOUR
     Route: 042
     Dates: start: 20151207
  2. CVS D3 [Concomitant]
     Indication: Product used for unknown indication
     Dosage: 2000 UNITS
     Route: 048
     Dates: start: 20171002
  3. ATARAX [Concomitant]
     Active Substance: HYDROXYZINE HYDROCHLORIDE
     Indication: Anxiety
     Route: 048
     Dates: start: 20171002
  4. MOBIC [Concomitant]
     Active Substance: MELOXICAM
     Indication: Product used for unknown indication
     Dosage: WITH FOOD AND 12 OZ OF WATER
     Route: 048
     Dates: start: 20171002
  5. GLUCOPHAGE [Concomitant]
     Active Substance: METFORMIN HYDROCHLORIDE
     Indication: Product used for unknown indication
     Dosage: TWICE A DAY, ONE WITH MORNING MEAL AND ONE WITH EVENING MEAL
     Route: 048
     Dates: start: 20161107
  6. ZANAFLEX [Concomitant]
     Active Substance: TIZANIDINE HYDROCHLORIDE
     Indication: Muscle spasms
     Dosage: 1 OR 2 TABLETS TWICE DAILY
     Route: 048
     Dates: start: 20210517
  7. CLONAZEPAM [Concomitant]
     Active Substance: CLONAZEPAM
     Indication: Product used for unknown indication
     Route: 065
  8. TRAZODONE [Concomitant]
     Active Substance: TRAZODONE HYDROCHLORIDE
     Indication: Product used for unknown indication
     Route: 065

REACTIONS (5)
  - Epilepsy [Unknown]
  - Stress [Unknown]
  - Anger [Unknown]
  - Allergy to arthropod sting [Unknown]
  - Depression [Unknown]

NARRATIVE: CASE EVENT DATE: 20200101
